FAERS Safety Report 17760264 (Version 1)
Quarter: 2020Q2

REPORT INFORMATION
  Report Type: Spontaneous
  Country: US (occurrence: US)
  Receive Date: 20200508
  Receipt Date: 20200508
  Transmission Date: 20200714
  Serious: No
  Sender: FDA-Public Use
  Company Number: None

PATIENT
  Age: 50 Year
  Sex: Female
  Weight: 90 kg

DRUGS (2)
  1. ZYRTEC [Concomitant]
     Active Substance: CETIRIZINE HYDROCHLORIDE
  2. ADVANTAN FATTY OINTMENT [Suspect]
     Active Substance: METHYLPREDNISOLONE ACEPONATE
     Indication: ECZEMA
     Route: 061

REACTIONS (13)
  - Erythema [None]
  - Skin burning sensation [None]
  - Feeling cold [None]
  - Skin exfoliation [None]
  - Steroid withdrawal syndrome [None]
  - Product prescribing issue [None]
  - Insomnia [None]
  - Oedema [None]
  - Fatigue [None]
  - Depressed mood [None]
  - Dependence [None]
  - Hyperhidrosis [None]
  - Contusion [None]

NARRATIVE: CASE EVENT DATE: 20200319
